FAERS Safety Report 9441126 (Version 1)
Quarter: 2013Q3

REPORT INFORMATION
  Report Type: Spontaneous
  Country: FR (occurrence: FR)
  Receive Date: 20130805
  Receipt Date: 20130805
  Transmission Date: 20140515
  Serious: Yes (Other)
  Sender: FDA-Public Use
  Company Number: FR-GLAXOSMITHKLINE-B0911267A

PATIENT
  Sex: Female

DRUGS (5)
  1. REQUIP [Suspect]
     Indication: PARKINSON^S DISEASE
     Route: 048
     Dates: start: 2006, end: 2008
  2. SIFROL [Suspect]
     Indication: PARKINSON^S DISEASE
     Dosage: 2.8MG PER DAY
     Route: 048
     Dates: start: 200807
  3. STALEVO [Concomitant]
     Route: 065
  4. SINEMET [Concomitant]
     Route: 065
  5. MODOPAR [Concomitant]
     Route: 065

REACTIONS (2)
  - Feeding disorder [Not Recovered/Not Resolved]
  - Grandiosity [Not Recovered/Not Resolved]
